FAERS Safety Report 21592398 (Version 1)
Quarter: 2022Q4

REPORT INFORMATION
  Report Type: Report from Study
  Country: FR (occurrence: None)
  Receive Date: 20221114
  Receipt Date: 20221114
  Transmission Date: 20230113
  Serious: Yes (Hospitalization)
  Sender: FDA-Public Use
  Company Number: FR-ROCHE-3215220

PATIENT
  Age: 77 Year
  Sex: Female
  Weight: 69 kg

DRUGS (15)
  1. TOCILIZUMAB [Suspect]
     Active Substance: TOCILIZUMAB
     Indication: Optic ischaemic neuropathy
     Route: 058
     Dates: start: 20220215, end: 20220215
  2. TOCILIZUMAB [Suspect]
     Active Substance: TOCILIZUMAB
     Route: 058
     Dates: start: 20220222, end: 20220222
  3. TOCILIZUMAB [Suspect]
     Active Substance: TOCILIZUMAB
     Route: 058
     Dates: start: 20220301, end: 20220301
  4. TOCILIZUMAB [Suspect]
     Active Substance: TOCILIZUMAB
     Route: 058
     Dates: start: 20220308
  5. PREDNISONE [Suspect]
     Active Substance: PREDNISONE
     Indication: Optic ischaemic neuropathy
     Route: 065
  6. SOLU-MEDROL [Concomitant]
     Active Substance: METHYLPREDNISOLONE SODIUM SUCCINATE
     Dates: start: 20220215, end: 20220216
  7. PREDNISONE [Concomitant]
     Active Substance: PREDNISONE
     Dates: start: 20220217, end: 20220303
  8. PREDNISONE [Concomitant]
     Active Substance: PREDNISONE
     Dates: start: 20220304, end: 20220317
  9. PREDNISONE [Concomitant]
     Active Substance: PREDNISONE
     Dates: start: 20220318, end: 20220331
  10. PREDNISONE [Concomitant]
     Active Substance: PREDNISONE
     Dates: start: 20220401, end: 20220414
  11. PREDNISONE [Concomitant]
     Active Substance: PREDNISONE
     Dates: start: 20220415, end: 20220428
  12. PREDNISONE [Concomitant]
     Active Substance: PREDNISONE
     Dates: start: 20220429, end: 20220512
  13. PREDNISONE [Concomitant]
     Active Substance: PREDNISONE
     Dates: start: 20220513, end: 20220526
  14. PREDNISONE [Concomitant]
     Active Substance: PREDNISONE
     Dates: start: 20220527, end: 20220609
  15. PREDNISONE [Concomitant]
     Active Substance: PREDNISONE
     Dates: start: 20220610, end: 20220623

REACTIONS (5)
  - Cholestasis [Recovered/Resolved]
  - Presyncope [Recovered/Resolved]
  - Myocardial ischaemia [Unknown]
  - Lower limb fracture [Not Recovered/Not Resolved]
  - Epistaxis [Recovered/Resolved]

NARRATIVE: CASE EVENT DATE: 20220223
